FAERS Safety Report 12500982 (Version 1)
Quarter: 2016Q2

REPORT INFORMATION
  Report Type: Spontaneous
  Country: US (occurrence: US)
  Receive Date: 20160627
  Receipt Date: 20160627
  Transmission Date: 20160815
  Serious: No
  Sender: FDA-Public Use
  Company Number: US-BAUSCH-BL-2015-020226

PATIENT
  Age: 35 Year
  Sex: Female
  Weight: 59.02 kg

DRUGS (9)
  1. TROKENDI [Suspect]
     Active Substance: TOPIRAMATE
     Indication: ANEURYSM
  2. ZOLOFT [Concomitant]
     Active Substance: SERTRALINE HYDROCHLORIDE
     Indication: ANXIETY
     Route: 048
     Dates: start: 201402
  3. BOTOX [Concomitant]
     Active Substance: ONABOTULINUMTOXINA
     Indication: HEADACHE
     Dates: start: 201502
  4. SOLODYN [Suspect]
     Active Substance: MINOCYCLINE HYDROCHLORIDE
     Indication: BREAST CYST
     Route: 048
     Dates: start: 201508, end: 20150822
  5. TROKENDI [Suspect]
     Active Substance: TOPIRAMATE
     Indication: CEREBROVASCULAR ACCIDENT
  6. NADOLOL. [Concomitant]
     Active Substance: NADOLOL
     Indication: HEART RATE INCREASED
     Route: 048
     Dates: start: 2014
  7. ADDERALL [Concomitant]
     Active Substance: AMPHETAMINE ASPARTATE\AMPHETAMINE SULFATE\DEXTROAMPHETAMINE SACCHARATE\DEXTROAMPHETAMINE SULFATE
     Indication: ANEURYSM
     Route: 048
     Dates: start: 2014
  8. TRAZODONE [Concomitant]
     Active Substance: TRAZODONE HYDROCHLORIDE
     Indication: INSOMNIA
     Dosage: AT BEDTIME
     Route: 048
     Dates: start: 2012
  9. TROKENDI [Suspect]
     Active Substance: TOPIRAMATE
     Indication: HEADACHE
     Dosage: 200-250 MG DAILY
     Route: 048

REACTIONS (3)
  - Alopecia [Not Recovered/Not Resolved]
  - Condition aggravated [Not Recovered/Not Resolved]
  - Breast cyst [Not Recovered/Not Resolved]

NARRATIVE: CASE EVENT DATE: 201508
